FAERS Safety Report 15434438 (Version 2)
Quarter: 2018Q4

REPORT INFORMATION
  Report Type: Spontaneous
  Country: PT (occurrence: PT)
  Receive Date: 20180927
  Receipt Date: 20181012
  Transmission Date: 20190204
  Serious: Yes (Hospitalization, Other)
  Sender: FDA-Public Use
  Company Number: PHHY2018PT102751

PATIENT
  Age: 56 Year
  Sex: Male

DRUGS (3)
  1. IMATINIB. [Suspect]
     Active Substance: IMATINIB MESYLATE
     Indication: HYPEREOSINOPHILIC SYNDROME
     Dosage: MAINTENANCE DOSE
     Route: 065
  2. IMATINIB. [Suspect]
     Active Substance: IMATINIB MESYLATE
     Indication: MYELOPROLIFERATIVE NEOPLASM
     Dosage: UNK
     Route: 065
  3. WARFARIN [Concomitant]
     Active Substance: WARFARIN
     Indication: ANTICOAGULANT THERAPY
     Route: 065

REACTIONS (16)
  - Tricuspid valve incompetence [Recovered/Resolved]
  - Hepatosplenomegaly [Unknown]
  - Mitral valve incompetence [Recovered/Resolved]
  - Pleural effusion [Recovered/Resolved]
  - Atrial enlargement [Recovered/Resolved]
  - Pericardial effusion [Recovered/Resolved]
  - Restrictive cardiomyopathy [Recovered/Resolved]
  - Intracardiac thrombus [Recovered/Resolved]
  - Cardiac failure [Recovered/Resolved]
  - Acute kidney injury [Recovered/Resolved]
  - Low cardiac output syndrome [Recovered/Resolved]
  - Respiratory failure [Recovered/Resolved]
  - Endocarditis fibroplastica [Recovered/Resolved]
  - Ventricular hypertrophy [Recovered/Resolved]
  - Systolic dysfunction [Recovered/Resolved]
  - Atrial flutter [Recovered/Resolved]

NARRATIVE: CASE EVENT DATE: 201510
